FAERS Safety Report 11330045 (Version 2)
Quarter: 2015Q3

REPORT INFORMATION
  Report Type: Spontaneous
  Country: US (occurrence: US)
  Receive Date: 20150803
  Receipt Date: 20150804
  Transmission Date: 20151125
  Serious: Yes (Hospitalization, Other)
  Sender: FDA-Public Use
  Company Number: US-PFIZER INC-2015253109

PATIENT
  Sex: Male

DRUGS (2)
  1. CABERGOLINE. [Suspect]
     Active Substance: CABERGOLINE
     Indication: BLOOD PROLACTIN INCREASED
     Dosage: MAY HAVE BEEN 0.25 OR 0.5
     Route: 064
     Dates: start: 201406, end: 201407
  2. CABERGOLINE. [Suspect]
     Active Substance: CABERGOLINE
     Indication: INFERTILITY

REACTIONS (4)
  - Hydrocephalus [Unknown]
  - Brain neoplasm [Not Recovered/Not Resolved]
  - Maternal exposure during pregnancy [Not Recovered/Not Resolved]
  - Foetal hypokinesia [Unknown]

NARRATIVE: CASE EVENT DATE: 2015
